FAERS Safety Report 18169489 (Version 1)
Quarter: 2020Q3

REPORT INFORMATION
  Report Type: Spontaneous
  Country: US (occurrence: US)
  Receive Date: 20200819
  Receipt Date: 20200819
  Transmission Date: 20201103
  Serious: Yes (Other)
  Sender: FDA-Public Use
  Company Number: None

PATIENT
  Age: 71 Year
  Sex: Female

DRUGS (22)
  1. BENZONATATE. [Concomitant]
     Active Substance: BENZONATATE
  2. CITRUCEL [Concomitant]
     Active Substance: METHYLCELLULOSE (4000 MPA.S)
  3. DOCUSATE [Concomitant]
     Active Substance: DOCUSATE
  4. SOFOSBUVIR?VELPATASVIR [Suspect]
     Active Substance: SOFOSBUVIR\VELPATASVIR
     Indication: CHRONIC HEPATITIS C
     Route: 048
  5. LISINOPRIL. [Concomitant]
     Active Substance: LISINOPRIL
  6. METAMUCIL [Concomitant]
     Active Substance: PLANTAGO SEED
  7. ONDANSETRON [Concomitant]
     Active Substance: ONDANSETRON
  8. NITROGLYCERIN. [Concomitant]
     Active Substance: NITROGLYCERIN
  9. SYMBICORT [Concomitant]
     Active Substance: BUDESONIDE\FORMOTEROL FUMARATE DIHYDRATE
  10. CLOPIDOGREL [Concomitant]
     Active Substance: CLOPIDOGREL BISULFATE
  11. GABAPENTIN. [Concomitant]
     Active Substance: GABAPENTIN
  12. METOPROLOL. [Concomitant]
     Active Substance: METOPROLOL
  13. TRAZODONE [Concomitant]
     Active Substance: TRAZODONE HYDROCHLORIDE
  14. ALBUTEROL INHALER [Concomitant]
     Active Substance: ALBUTEROL
  15. PRAZOSIN. [Concomitant]
     Active Substance: PRAZOSIN
  16. FUROSEMIDE. [Concomitant]
     Active Substance: FUROSEMIDE
  17. OLANZAPINE. [Concomitant]
     Active Substance: OLANZAPINE
  18. TIOTROPIUM [Concomitant]
     Active Substance: TIOTROPIUM
  19. AMLODIPINE [Concomitant]
     Active Substance: AMLODIPINE BESYLATE
  20. ASPIRIN. [Concomitant]
     Active Substance: ASPIRIN
  21. PERPHENAZINE. [Concomitant]
     Active Substance: PERPHENAZINE
  22. POTASSIUM CHLORIDE. [Concomitant]
     Active Substance: POTASSIUM CHLORIDE

REACTIONS (4)
  - Condition aggravated [None]
  - Personality change [None]
  - Mental disorder [None]
  - Schizophrenia [None]
